FAERS Safety Report 6068242-X (Version None)
Quarter: 2009Q1

REPORT INFORMATION
  Report Type: 
  Country: None (occurrence: None)
  Receive Date: 20090206
  Receipt Date: 20090127
  Transmission Date: 20090719
  Serious: Yes (Other)
  Sender: FDA-Public Use
  Company Number: PHHY2008CA28880

PATIENT
  Sex: Male

DRUGS (8)
  1. DIOVAN [Suspect]
     Indication: HYPERTENSION
     Dosage: 160 MG, QD
     Route: 048
     Dates: start: 20071009
  2. NORVASC [Concomitant]
     Dosage: 10 MG, QD
     Dates: start: 20080809
  3. CALCIUM CHANNEL BLOCKERS [Concomitant]
  4. DIURETICS [Concomitant]
  5. FAMVIR [Concomitant]
     Dosage: 500 MG, TID
  6. HYDROCHLOROTHIAZIDE [Concomitant]
     Dosage: 25 MG, QD
  7. PARIET [Concomitant]
  8. ARTHROTEC [Concomitant]
     Dosage: 50 MG, UNK

REACTIONS (6)
  - BLOOD PRESSURE INCREASED [None]
  - EAR PAIN [None]
  - HEADACHE [None]
  - HERPES ZOSTER OTICUS [None]
  - PAIN [None]
  - SKIN LESION [None]
